FAERS Safety Report 9480877 (Version 2)
Quarter: 2014Q1

REPORT INFORMATION
  Report Type: Spontaneous
  Country: GB (occurrence: GB)
  Receive Date: 20130828
  Receipt Date: 20140120
  Transmission Date: 20141002
  Serious: Yes (Hospitalization)
  Sender: FDA-Public Use
  Company Number: GB-009507513-1308GBR011141

PATIENT
  Age: 68 Year
  Sex: Female
  Weight: 60 kg

DRUGS (13)
  1. DEXAMETHASONE [Suspect]
     Indication: PLASMA CELL MYELOMA
     Dosage: 40 MG, QW
     Route: 065
     Dates: start: 20121114, end: 20130201
  2. REVLIMID [Suspect]
     Indication: PLASMA CELL MYELOMA
     Dosage: 25 MG, QD
     Route: 048
     Dates: start: 20121114, end: 20130122
  3. REVLIMID [Suspect]
     Dosage: UNK
     Route: 048
     Dates: start: 20130322
  4. REVLIMID [Suspect]
     Dosage: UNK
     Route: 048
     Dates: start: 201304
  5. REVLIMID [Suspect]
     Dosage: 25 UNK, UNK
     Route: 048
     Dates: start: 20130208
  6. AMITRIPTYLINE HYDROCHLORIDE [Concomitant]
     Indication: NEURALGIA
     Dosage: 20 MG, UNK
     Route: 065
  7. ASPIRIN [Concomitant]
     Indication: THROMBOSIS PROPHYLAXIS
     Dosage: 75 MG, QW
     Route: 065
  8. CALCEOS [Concomitant]
     Indication: MINERAL SUPPLEMENTATION
     Dosage: UNK, BID
     Route: 065
  9. OMEPRAZOLE [Concomitant]
     Indication: PROPHYLAXIS
     Dosage: 20 MG, QW
     Route: 065
  10. ACETAMINOPHEN [Concomitant]
     Indication: PYREXIA
     Dosage: 1 G, UNK
     Route: 065
  11. ALBUTEROL [Concomitant]
     Indication: ASTHMA
     Dosage: 200 MG, UNK
     Route: 065
  12. SERETIDE [Concomitant]
     Indication: ASTHMA
     Dosage: 250 MG, UNK
     Route: 065
  13. ZOMETA [Concomitant]
     Indication: PLASMA CELL MYELOMA
     Dosage: 4MG 4/1 WEEK
     Route: 065
     Dates: start: 20110816

REACTIONS (2)
  - Infective exacerbation of bronchiectasis [Recovered/Resolved]
  - Lower respiratory tract infection [Recovered/Resolved]
